FAERS Safety Report 8175881-9 (Version None)
Quarter: 2012Q1

REPORT INFORMATION
  Report Type: 
  Country: None (occurrence: None)
  Receive Date: 20120301
  Receipt Date: 20120221
  Transmission Date: 20120608
  Serious: Yes (Hospitalization, Other)
  Sender: FDA-Public Use
  Company Number: US-BAYER-2011-109560

PATIENT
  Age: 71 Year
  Sex: Female

DRUGS (2)
  1. NEXAVAR [Suspect]
     Indication: SOFT TISSUE NEOPLASM
     Dosage: 400 MG, BID
     Route: 048
     Dates: start: 20111020
  2. NEXAVAR [Suspect]
     Dosage: 400 MG, UNK
     Route: 048

REACTIONS (4)
  - LOSS OF CONSCIOUSNESS [None]
  - BLOOD PRESSURE INCREASED [None]
  - DIPLOPIA [None]
  - UNEVALUABLE EVENT [None]
